FAERS Safety Report 10463129 (Version 2)
Quarter: 2014Q4

REPORT INFORMATION
  Report Type: Spontaneous
  Country: JP (occurrence: JP)
  Receive Date: 20140919
  Receipt Date: 20141010
  Transmission Date: 20150528
  Serious: Yes (Hospitalization, Other)
  Sender: FDA-Public Use
  Company Number: JP-AMGEN-JPNSP2014071565

PATIENT
  Age: 46 Year
  Sex: Female

DRUGS (4)
  1. OXAROL [Concomitant]
     Active Substance: MAXACALCITOL
     Dosage: 7.5 MUG, UNK
     Route: 042
     Dates: end: 20140905
  2. CALTAN [Concomitant]
     Active Substance: CALCIUM CARBONATE
     Dosage: 2 G, TID
     Route: 048
  3. REGPARA [Suspect]
     Active Substance: CINACALCET HYDROCHLORIDE
     Indication: HYPERPARATHYROIDISM SECONDARY
     Dosage: 100 MG, UNK
     Route: 048
     Dates: start: 2008, end: 20140905
  4. RENAGEL [Concomitant]
     Active Substance: SEVELAMER HYDROCHLORIDE
     Dosage: 3 G, TID
     Route: 048
     Dates: end: 20140905

REACTIONS (2)
  - Parathyroid tumour benign [Unknown]
  - Drug ineffective [Unknown]

NARRATIVE: CASE EVENT DATE: 201307
